FAERS Safety Report 19074491 (Version 2)
Quarter: 2021Q2

REPORT INFORMATION
  Report Type: Spontaneous
  Country: CN (occurrence: CN)
  Receive Date: 20210330
  Receipt Date: 20210407
  Transmission Date: 20210717
  Serious: Yes (Life-Threatening, Hospitalization, Other)
  Sender: FDA-Public Use
  Company Number: CN-PFIZER INC-2021301127

PATIENT
  Age: 62 Year
  Sex: Male

DRUGS (2)
  1. EPIRUBICIN HCL [Suspect]
     Active Substance: EPIRUBICIN HYDROCHLORIDE
     Indication: BLADDER CANCER RECURRENT
     Dosage: 50 MG/M2, DISSOLVED IN 50 ML OF SALINE SOLUTION
     Route: 013
  2. SALINE [SODIUM CHLORIDE] [Concomitant]
     Active Substance: SODIUM CHLORIDE
     Dosage: 50 ML
     Route: 013

REACTIONS (3)
  - Product use issue [Unknown]
  - Off label use [Unknown]
  - Kounis syndrome [Recovered/Resolved]
